FAERS Safety Report 9175679 (Version 2)
Quarter: 2012Q4

REPORT INFORMATION
  Report Type: 
  Country: US (occurrence: US)
  Receive Date: 20120913
  Receipt Date: 20120917
  Transmission Date: 20130627
  Serious: Yes (Other)
  Sender: FDA-Public Use
  Company Number: US-RB-044277-12

PATIENT
  Age: 61 Year
  Sex: Female

DRUGS (1)
  1. DELSYM [Suspect]
     Indication: PRODUCT USED FOR UNKNOWN INDICATION
     Dosage: Patient had taken the product three times a day every 8 hours.
     Route: 048
     Dates: start: 20120901

REACTIONS (2)
  - Blood pressure increased [Unknown]
  - Inappropriate schedule of drug administration [Recovered/Resolved]
